FAERS Safety Report 7880256-3 (Version None)
Quarter: 2011Q4

REPORT INFORMATION
  Report Type: 
  Country: None (occurrence: None)
  Receive Date: 20111101
  Receipt Date: 20100826
  Transmission Date: 20120403
  Serious: No
  Sender: FDA-Public Use
  Company Number: US-BAYER-201031688NA

PATIENT
  Sex: Female

DRUGS (3)
  1. LEXAPRO [Concomitant]
     Dosage: 5 MG, UNK
  2. AVELOX [Suspect]
     Indication: BRONCHITIS
  3. XANAX [Concomitant]
     Dosage: 0.25 MG, UNK

REACTIONS (3)
  - HEADACHE [None]
  - DIZZINESS [None]
  - ANXIETY [None]
